FAERS Safety Report 5505497-1 (Version None)
Quarter: 2007Q4

REPORT INFORMATION
  Report Type: 
  Country: None (occurrence: None)
  Receive Date: 20071031
  Receipt Date: 20071023
  Transmission Date: 20080405
  Serious: Yes (Hospitalization)
  Sender: FDA-Public Use
  Company Number: S07-ITA-00163-01

PATIENT
  Age: 33 Year
  Sex: Female
  Weight: 105 kg

DRUGS (6)
  1. CIPRALEX [Suspect]
     Indication: PANIC ATTACK
     Dosage: 5 MG QD PO
     Route: 048
     Dates: start: 20060701, end: 20060705
  2. CIPRALEX        (ESCITALOPRAM) [Suspect]
     Indication: PANIC ATTACK
     Dosage: 15 MG QD PO
     Route: 048
     Dates: start: 20060626, end: 20060630
  3. CIPRALEX (ESCITALOPRAM) [Suspect]
     Indication: PANIC ATTACK
     Dosage: 15 MG QD PO
     Route: 048
     Dates: start: 20060621, end: 20060625
  4. CIPRALEX (ESCITALOPRAM) [Suspect]
     Indication: PANIC ATTACK
     Dosage: 20 MG QD PO
     Route: 048
     Dates: start: 20060211, end: 20060621
  5. CIPRALEX         (ESCITALOPRAM) [Suspect]
     Indication: POSTPARTUM DEPRESSION
  6. SEDATOL [Concomitant]

REACTIONS (10)
  - ASPARTATE AMINOTRANSFERASE INCREASED [None]
  - BLOOD PRESSURE INADEQUATELY CONTROLLED [None]
  - CAESAREAN SECTION [None]
  - DIZZINESS [None]
  - DRUG EXPOSURE DURING PREGNANCY [None]
  - HAEMATOCRIT INCREASED [None]
  - INFECTION [None]
  - POSTPARTUM DEPRESSION [None]
  - PREGNANCY [None]
  - SYNCOPE [None]
